FAERS Safety Report 24293735 (Version 2)
Quarter: 2025Q3

REPORT INFORMATION
  Report Type: Spontaneous
  Country: US (occurrence: US)
  Receive Date: 20240906
  Receipt Date: 20250905
  Transmission Date: 20251021
  Serious: No
  Sender: DOMPE FARMACEUTICI
  Company Number: US-FARMAPROD-202308-202402-0593

PATIENT
  Sex: Female
  Weight: 51.26 kg

DRUGS (21)
  1. OXERVATE [Suspect]
     Active Substance: CENEGERMIN-BKBJ
     Indication: Neurotrophic keratopathy
     Route: 047
     Dates: start: 20240213, end: 20240410
  2. OXERVATE [Suspect]
     Active Substance: CENEGERMIN-BKBJ
  3. OXERVATE [Suspect]
     Active Substance: CENEGERMIN-BKBJ
     Route: 047
     Dates: start: 20241023
  4. OXERVATE [Suspect]
     Active Substance: CENEGERMIN-BKBJ
  5. NEURIVA ORIGINAL [Concomitant]
  6. SYSTANE (HYPROMELLOSE 2910 (4000 MPA.S)) [Concomitant]
     Active Substance: HYPROMELLOSE 2910 (4000 MPA.S)
  7. BENADRYL ALLERGY [Concomitant]
     Active Substance: DIPHENHYDRAMINE HYDROCHLORIDE
  8. HYDROXYCHLOROQUINE SULFATE [Concomitant]
     Active Substance: HYDROXYCHLOROQUINE SULFATE
  9. OMEPRAZOLE [Concomitant]
     Active Substance: OMEPRAZOLE
  10. TRAMADOL HCL-ACETAMINOPHEN [Concomitant]
  11. ALBUTEROL SULFATE [Concomitant]
     Active Substance: ALBUTEROL SULFATE
  12. BUPROPION [Concomitant]
     Active Substance: BUPROPION
  13. FENOFIBRATE [Concomitant]
     Active Substance: FENOFIBRATE
  14. MOMETASONE FUROATE [Concomitant]
     Active Substance: MOMETASONE FUROATE
  15. LOSARTAN POTASSIUM [Concomitant]
     Active Substance: LOSARTAN POTASSIUM
  16. CELEBREX [Concomitant]
     Active Substance: CELECOXIB
  17. TRICOR [Concomitant]
     Active Substance: FENOFIBRATE
  18. VALTREX [Concomitant]
     Active Substance: VALACYCLOVIR HYDROCHLORIDE
  19. REMICADE [Concomitant]
     Active Substance: INFLIXIMAB
  20. LISINOPRIL [Concomitant]
     Active Substance: LISINOPRIL
  21. OTC PROBIOTIC [Concomitant]

REACTIONS (5)
  - Eye pain [Not Recovered/Not Resolved]
  - Photophobia [Unknown]
  - Sinus pain [Not Recovered/Not Resolved]
  - Paranasal sinus discomfort [Not Recovered/Not Resolved]
  - Headache [Not Recovered/Not Resolved]
